FAERS Safety Report 17218785 (Version 1)
Quarter: 2020Q1

REPORT INFORMATION
  Report Type: Spontaneous
  Country: US (occurrence: US)
  Receive Date: 20191230
  Receipt Date: 20191230
  Transmission Date: 20200409
  Serious: Yes (Hospitalization)
  Sender: FDA-Public Use
  Company Number: None

PATIENT
  Age: 59 Year
  Sex: Female

DRUGS (3)
  1. ENBREL [Suspect]
     Active Substance: ETANERCEPT
     Indication: RHEUMATOID ARTHRITIS
     Dosage: ?          OTHER FREQUENCY:EVERY WEEK;?
     Route: 058
     Dates: start: 20180614
  2. TRAMADOL, TOPIRAMATE [Concomitant]
  3. PANTOPRAZOLE, SUMATRIPTAN, CYCLOBENZAPRINE [Concomitant]

REACTIONS (2)
  - Drug ineffective [None]
  - Surgery [None]

NARRATIVE: CASE EVENT DATE: 20191228
